FAERS Safety Report 6432313-6 (Version None)
Quarter: 2009Q4

REPORT INFORMATION
  Report Type: 
  Country: None (occurrence: None)
  Receive Date: 20091109
  Receipt Date: 20091029
  Transmission Date: 20100525
  Serious: Yes (Other)
  Sender: FDA-Public Use
  Company Number: US-CUBIST-2009S1000464

PATIENT
  Sex: Male
  Weight: 3.1 kg

DRUGS (1)
  1. CUBICIN [Suspect]
     Dates: start: 20081111, end: 20081218

REACTIONS (1)
  - DRUG WITHDRAWAL SYNDROME NEONATAL [None]
